FAERS Safety Report 9228482 (Version 1)
Quarter: 2013Q2

REPORT INFORMATION
  Report Type: Spontaneous
  Country: JP (occurrence: JP)
  Receive Date: 20130412
  Receipt Date: 20130412
  Transmission Date: 20140414
  Serious: Yes (Other)
  Sender: FDA-Public Use
  Company Number: JP-GLAXOSMITHKLINE-B0869830A

PATIENT
  Age: 74 Year
  Sex: Male

DRUGS (1)
  1. VALTREX [Suspect]
     Indication: HERPES ZOSTER DISSEMINATED
     Dosage: 1000MG TWICE PER DAY
     Route: 048
     Dates: start: 20121220

REACTIONS (3)
  - Meningitis [Unknown]
  - Nervous system disorder [Unknown]
  - Dizziness [Unknown]
